FAERS Safety Report 15601263 (Version 1)
Quarter: 2018Q4

REPORT INFORMATION
  Report Type: Report from Study
  Country: PL (occurrence: PL)
  Receive Date: 20181109
  Receipt Date: 20181109
  Transmission Date: 20190205
  Serious: Yes (Hospitalization)
  Sender: FDA-Public Use
  Company Number: PL-ROCHE-2207829

PATIENT
  Age: 48 Year
  Sex: Female
  Weight: 65 kg

DRUGS (18)
  1. FURAGINUM [Concomitant]
     Active Substance: FURAZIDINE
     Indication: PROPHYLAXIS
     Route: 048
     Dates: start: 20180409
  2. TULIP (POLAND) [Concomitant]
     Route: 048
     Dates: start: 20170416
  3. PARACETAMOL [Concomitant]
     Active Substance: ACETAMINOPHEN
     Route: 048
     Dates: start: 20180817, end: 20180817
  4. ZYRTEC [Concomitant]
     Active Substance: CETIRIZINE HYDROCHLORIDE
     Route: 048
     Dates: start: 20180817, end: 20180817
  5. PRESTARIUM [Concomitant]
     Active Substance: PERINDOPRIL
     Route: 048
     Dates: start: 20180414
  6. TEGRETOL [Concomitant]
     Active Substance: CARBAMAZEPINE
     Route: 048
     Dates: start: 20180409, end: 20180422
  7. TEGRETOL [Concomitant]
     Active Substance: CARBAMAZEPINE
     Route: 048
     Dates: start: 20180626
  8. AMERTIL [Concomitant]
     Active Substance: CETIRIZINE HYDROCHLORIDE
     Indication: PREMEDICATION
     Route: 048
     Dates: start: 20170921, end: 20170921
  9. METHYLPREDNISOLONE. [Suspect]
     Active Substance: METHYLPREDNISOLONE
     Indication: PREMEDICATION
     Dosage: 21/SEP/2018 START TIME: 12: 40, STOP TIME: 12: 55. SUBSEQUENT DOSES RECEIVED ON: 06/OCT/2017 (START
     Route: 042
     Dates: start: 20170921
  10. SIRDALUD [Concomitant]
     Active Substance: TIZANIDINE
     Route: 048
  11. ZYRTEC [Concomitant]
     Active Substance: CETIRIZINE HYDROCHLORIDE
     Indication: PREMEDICATION
     Route: 048
     Dates: start: 20180227, end: 20180227
  12. OCRELIZUMAB. [Suspect]
     Active Substance: OCRELIZUMAB
     Indication: RELAPSING-REMITTING MULTIPLE SCLEROSIS
     Dosage: MOST RECENT DOSE (600 MG) OF OCRELIZUMAB PRIOR TO EVENT: 17/AUG/2018?TWO 300 MILLIGRAM (MG) INFUSION
     Route: 042
     Dates: start: 20170921
  13. LOKREN [Concomitant]
     Active Substance: BETAXOLOL HYDROCHLORIDE
     Route: 048
  14. PRESTARIUM [Concomitant]
     Active Substance: PERINDOPRIL
     Route: 048
     Dates: end: 20180413
  15. AMERTIL [Concomitant]
     Active Substance: CETIRIZINE HYDROCHLORIDE
     Route: 048
     Dates: start: 20171006, end: 20171006
  16. PARACETAMOL [Concomitant]
     Active Substance: ACETAMINOPHEN
     Indication: PREMEDICATION
     Route: 048
     Dates: start: 20180227, end: 20180227
  17. TEGRETOL [Concomitant]
     Active Substance: CARBAMAZEPINE
     Route: 048
     Dates: start: 20180423, end: 20180625
  18. SERTAGEN [Concomitant]
     Active Substance: SERTRALINE HYDROCHLORIDE
     Route: 048

REACTIONS (1)
  - Urinary tract infection [Not Recovered/Not Resolved]

NARRATIVE: CASE EVENT DATE: 20181028
